FAERS Safety Report 10249393 (Version 1)
Quarter: 2014Q2

REPORT INFORMATION
  Report Type: Spontaneous
  Country: US (occurrence: None)
  Receive Date: 20140618
  Receipt Date: 20140618
  Transmission Date: 20141212
  Serious: Yes (Disabling, Other)
  Sender: FDA-Public Use
  Company Number: None

PATIENT
  Age: 30 Year
  Sex: Female
  Weight: 155.58 kg

DRUGS (2)
  1. HEADACHE RELIEF EXTRA STRENGTH [Suspect]
     Indication: ORAL PAIN
     Dosage: 2 PILLS, AS NEEDED, TAKEN BY MOUTH
     Route: 048
     Dates: start: 20140617, end: 20140617
  2. HEADACHE RELIEF EXTRA STRENGTH [Suspect]
     Indication: TOOTH REPAIR
     Dosage: 2 PILLS, AS NEEDED, TAKEN BY MOUTH
     Route: 048
     Dates: start: 20140617, end: 20140617

REACTIONS (10)
  - Abdominal pain upper [None]
  - Abdominal distension [None]
  - Nausea [None]
  - Defaecation urgency [None]
  - Dizziness [None]
  - Nervous system disorder [None]
  - Hypervigilance [None]
  - Hypersensitivity [None]
  - Product label issue [None]
  - Product quality issue [None]
